FAERS Safety Report 10468691 (Version 5)
Quarter: 2015Q4

REPORT INFORMATION
  Report Type: Spontaneous
  Country: JP (occurrence: JP)
  Receive Date: 20140922
  Receipt Date: 20151027
  Transmission Date: 20160304
  Serious: Yes (Life-Threatening, Hospitalization, Other)
  Sender: FDA-Public Use
  Company Number: JP-009507513-1409JPN010099

PATIENT
  Age: 83 Year
  Sex: Male
  Weight: 49 kg

DRUGS (9)
  1. DIPRIVAN [Suspect]
     Active Substance: PROPOFOL
     Indication: INDUCTION AND MAINTENANCE OF ANAESTHESIA
     Dosage: 190 MG,QD(DIVIDED DOSE FREQUENCY UNKNOWN)
     Route: 042
     Dates: start: 20140916, end: 20140916
  2. EPHEDRINE. [Suspect]
     Active Substance: EPHEDRINE
     Indication: BLOOD PRESSURE DECREASED
     Dosage: 4 MG, QD(DIVIDED DOSE FRQUENCY UNKNOWN)
     Route: 042
     Dates: start: 20140916, end: 20140916
  3. CEFMETAZOLE SODIUM [Suspect]
     Active Substance: CEFMETAZOLE SODIUM
     Indication: PROPHYLAXIS
     Dosage: 1 G, QD (DIVIDED DOSE FREQUENCY UNKNOWN)
     Route: 042
     Dates: start: 20140916, end: 20140916
  4. ESLAX INTRAVENOUS 50MG/5.0ML [Suspect]
     Active Substance: ROCURONIUM BROMIDE
     Indication: NEUROMUSCULAR BLOCKING THERAPY
     Dosage: 50 MG, QD; STRENGTH: 50MG/0.5ML
     Route: 042
     Dates: start: 20140916, end: 20140916
  5. ULTIVA [Suspect]
     Active Substance: REMIFENTANIL HYDROCHLORIDE
     Indication: INDUCTION AND MAINTENANCE OF ANAESTHESIA
     Dosage: 0.3 MG QD(DIVIDED DOSE FREQUENCY UNKNOWN)
     Route: 042
     Dates: start: 20140916, end: 20140916
  6. NEOSYNESIN [Suspect]
     Active Substance: PHENYLEPHRINE HYDROCHLORIDE
     Indication: BLOOD PRESSURE DECREASED
     Dosage: 0.2 MG, QD (DIVIDED DOSE FREQUENCY UNKNOWN)
     Route: 042
     Dates: start: 20140916, end: 20140916
  7. BRIDION [Suspect]
     Active Substance: SUGAMMADEX
     Indication: NEUROMUSCULAR BLOCKADE REVERSAL
     Dosage: 100 MG ONCE A DAY
     Route: 042
     Dates: start: 20140916, end: 20140916
  8. FENTANYL. [Suspect]
     Active Substance: FENTANYL
     Indication: INDUCTION AND MAINTENANCE OF ANAESTHESIA
     Dosage: 50 MICROGRAM, QD (DIVIDED DOSE FREQUENCY UNKNOWN)
     Route: 042
     Dates: start: 20140916, end: 20140916
  9. XYLOCAINE [Suspect]
     Active Substance: LIDOCAINE HYDROCHLORIDE
     Indication: INDUCTION OF ANAESTHESIA
     Dosage: 50 MG,QD (DIVIDED DOSE FREQUENCY UNKNOWN)
     Route: 042
     Dates: start: 20140916, end: 20140916

REACTIONS (2)
  - Cardiac arrest [Recovered/Resolved]
  - Atrioventricular block complete [Recovered/Resolved]

NARRATIVE: CASE EVENT DATE: 20140916
